FAERS Safety Report 6587678-1 (Version None)
Quarter: 2010Q1

REPORT INFORMATION
  Report Type: 
  Country: None (occurrence: None)
  Receive Date: 20100217
  Receipt Date: 20100217
  Transmission Date: 20100710
  Serious: Yes (Hospitalization)
  Sender: FDA-Public Use
  Company Number: None

PATIENT
  Age: 48 Year
  Sex: Female
  Weight: 65 kg

DRUGS (7)
  1. CARBATROL [Suspect]
     Indication: CONVULSION
     Dosage: 300MG TID PO, LONG-TERM
     Route: 048
  2. AMBIEN [Concomitant]
  3. FLUOXETINE [Concomitant]
  4. KLONOPIN [Concomitant]
  5. NEURONTIN [Concomitant]
  6. VITAMIN D2 [Concomitant]
  7. ZYPREXA [Concomitant]

REACTIONS (8)
  - AGGRESSION [None]
  - AGITATION [None]
  - COMPLEX PARTIAL SEIZURES [None]
  - HALLUCINATIONS, MIXED [None]
  - OBSESSIVE-COMPULSIVE DISORDER [None]
  - PERSEVERATION [None]
  - PSYCHOTIC DISORDER [None]
  - SEDATION [None]
